FAERS Safety Report 16148800 (Version 28)
Quarter: 2021Q4

REPORT INFORMATION
  Report Type: Report from Study
  Country: CA (occurrence: CA)
  Receive Date: 20190402
  Receipt Date: 20211226
  Transmission Date: 20220303
  Serious: Yes (Life-Threatening, Hospitalization, Other)
  Sender: FDA-Public Use
  Company Number: PHHY2017CA159101

PATIENT
  Sex: Female

DRUGS (34)
  1. SANDOSTATIN LAR DEPOT [Suspect]
     Active Substance: OCTREOTIDE ACETATE
     Indication: Gastrointestinal carcinoma
     Dosage: 30 MG, QMO
     Route: 030
     Dates: start: 20070503
  2. SANDOSTATIN LAR DEPOT [Suspect]
     Active Substance: OCTREOTIDE ACETATE
     Dosage: 40 MG, Q3W
     Route: 065
     Dates: start: 20070503
  3. SANDOSTATIN LAR DEPOT [Suspect]
     Active Substance: OCTREOTIDE ACETATE
     Dosage: 40 MG, Q2W
     Route: 030
     Dates: start: 20070503, end: 20100727
  4. SANDOSTATIN LAR DEPOT [Suspect]
     Active Substance: OCTREOTIDE ACETATE
     Dosage: 40 MG, Q3W
     Route: 030
     Dates: start: 2008
  5. SANDOSTATIN LAR DEPOT [Suspect]
     Active Substance: OCTREOTIDE ACETATE
     Dosage: 40 MG, Q2W
     Route: 030
     Dates: start: 20181205
  6. SANDOSTATIN LAR DEPOT [Suspect]
     Active Substance: OCTREOTIDE ACETATE
     Dosage: UNK, Q2W
     Route: 030
  7. SANDOSTATIN LAR DEPOT [Suspect]
     Active Substance: OCTREOTIDE ACETATE
     Dosage: UNK
     Route: 030
  8. SANDOSTATIN LAR DEPOT [Suspect]
     Active Substance: OCTREOTIDE ACETATE
     Dosage: UNK
     Route: 030
  9. SANDOSTATIN LAR DEPOT [Suspect]
     Active Substance: OCTREOTIDE ACETATE
     Dosage: 40 MG, Q2W
     Route: 030
  10. SANDOSTATIN LAR DEPOT [Suspect]
     Active Substance: OCTREOTIDE ACETATE
     Dosage: 40 MG, Q2W
     Route: 030
  11. SANDOSTATIN LAR DEPOT [Suspect]
     Active Substance: OCTREOTIDE ACETATE
     Dosage: 40 MG, Q2W
     Route: 030
     Dates: start: 20190216
  12. SANDOSTATIN LAR DEPOT [Suspect]
     Active Substance: OCTREOTIDE ACETATE
     Dosage: 40 MG, Q3W
     Route: 030
     Dates: start: 20190301
  13. SANDOSTATIN LAR DEPOT [Suspect]
     Active Substance: OCTREOTIDE ACETATE
     Dosage: 40 MG
     Route: 030
  14. SANDOSTATIN LAR DEPOT [Suspect]
     Active Substance: OCTREOTIDE ACETATE
     Dosage: 20 MG
     Route: 030
  15. SANDOSTATIN LAR DEPOT [Suspect]
     Active Substance: OCTREOTIDE ACETATE
     Dosage: 40 MG, Q3W
     Route: 030
     Dates: start: 20190301
  16. SANDOSTATIN [Suspect]
     Active Substance: OCTREOTIDE ACETATE
     Indication: Carcinoid syndrome
     Dosage: 100 UG, TID
     Route: 058
     Dates: start: 20130214
  17. SANDOSTATIN [Suspect]
     Active Substance: OCTREOTIDE ACETATE
     Indication: Abdominal pain
     Dosage: 50 UG, TID
     Route: 058
     Dates: start: 2013, end: 20130302
  18. SANDOSTATIN [Suspect]
     Active Substance: OCTREOTIDE ACETATE
     Indication: Diarrhoea
     Dosage: 100 UG, ONCE OR TWICE DAILY, (STRENGTH 100 MCG)
     Route: 058
  19. OCTREOTIDE [Suspect]
     Active Substance: OCTREOTIDE
     Indication: Hyperhidrosis
     Dosage: 100 MICROGRAM PER 100 GRAM, QD
     Route: 058
  20. OCTREOTIDE [Suspect]
     Active Substance: OCTREOTIDE
     Indication: Diarrhoea
     Dosage: 2 DF, UNK
     Route: 058
     Dates: start: 20190215
  21. OCTREOTIDE [Suspect]
     Active Substance: OCTREOTIDE
     Indication: Analgesic therapy
     Dosage: UNK, BID
     Route: 058
  22. OCTREOTIDE [Suspect]
     Active Substance: OCTREOTIDE
     Dosage: 100 UG, UNK (DAILY 3 DAYS BEFORE INJECTIONS)
     Route: 058
  23. OCTREOTIDE [Suspect]
     Active Substance: OCTREOTIDE
     Dosage: UNK
     Route: 065
     Dates: start: 20190702
  24. GABAPENTIN [Concomitant]
     Active Substance: GABAPENTIN
     Indication: Pain
     Dosage: UNK
     Route: 065
  25. GABAPENTIN [Concomitant]
     Active Substance: GABAPENTIN
     Indication: Seizure
  26. GABAPENTIN [Concomitant]
     Active Substance: GABAPENTIN
     Indication: Brain neoplasm
  27. CODEINE [Concomitant]
     Active Substance: CODEINE
     Indication: Pain
     Dosage: UNK
     Route: 065
  28. GLIKAZID [Concomitant]
     Indication: Product used for unknown indication
     Dosage: 30 MG, QD
     Route: 065
  29. VIOKASE [Concomitant]
     Active Substance: PANCRELIPASE
     Indication: Product used for unknown indication
     Dosage: 3-4 TABLET, QID
     Route: 065
  30. METHADONE [Concomitant]
     Active Substance: METHADONE HYDROCHLORIDE
     Indication: Product used for unknown indication
     Dosage: 42 MG, Q8H
     Route: 065
  31. METHADONE [Concomitant]
     Active Substance: METHADONE HYDROCHLORIDE
     Dosage: 36 MG, UNK
     Route: 065
  32. METHADONE [Concomitant]
     Active Substance: METHADONE HYDROCHLORIDE
     Dosage: 25 MG, QD
     Route: 048
  33. BREO ELLIPTA [Concomitant]
     Active Substance: FLUTICASONE FUROATE\VILANTEROL TRIFENATATE
     Indication: Product used for unknown indication
     Dosage: UNK
     Route: 065
     Dates: start: 2019
  34. FLUTICASONE FUROATE [Concomitant]
     Active Substance: FLUTICASONE FUROATE
     Indication: Product used for unknown indication
     Dosage: UNK
     Route: 065
     Dates: start: 2019

REACTIONS (73)
  - Carcinoid crisis [Unknown]
  - Carcinoid tumour pulmonary [Unknown]
  - Dyspnoea [Recovered/Resolved]
  - Chest pain [Unknown]
  - Cardiac failure [Unknown]
  - Pneumonia [Unknown]
  - Intestinal obstruction [Recovered/Resolved]
  - Hepatic cirrhosis [Unknown]
  - Abdominal pain [Recovered/Resolved]
  - Abdominal distension [Recovered/Resolved]
  - Nausea [Recovered/Resolved]
  - Constipation [Unknown]
  - Vomiting [Recovered/Resolved]
  - Pulmonary oedema [Recovering/Resolving]
  - Pneumothorax [Unknown]
  - Renal impairment [Unknown]
  - Glomerular filtration rate decreased [Unknown]
  - Nephrolithiasis [Unknown]
  - Carcinoid tumour of the small bowel [Unknown]
  - Diarrhoea [Recovering/Resolving]
  - Flushing [Unknown]
  - Escherichia infection [Unknown]
  - Flank pain [Unknown]
  - Breakthrough pain [Unknown]
  - Blood pressure increased [Unknown]
  - Anal incontinence [Unknown]
  - Peripheral swelling [Unknown]
  - Urinary tract infection [Unknown]
  - Dysuria [Unknown]
  - Blood urine present [Unknown]
  - Scab [Recovering/Resolving]
  - Pain in extremity [Unknown]
  - Hyperhidrosis [Unknown]
  - Frequent bowel movements [Unknown]
  - Abdominal pain lower [Not Recovered/Not Resolved]
  - Haemorrhoids [Unknown]
  - Emphysema [Unknown]
  - Joint swelling [Unknown]
  - Lung disorder [Unknown]
  - Wheezing [Unknown]
  - Rales [Unknown]
  - Cystitis [Unknown]
  - Body temperature decreased [Unknown]
  - Productive cough [Not Recovered/Not Resolved]
  - Varicose vein [Unknown]
  - Insomnia [Unknown]
  - Post procedural infection [Unknown]
  - Skin weeping [Unknown]
  - Breast mass [Unknown]
  - Miliaria [Unknown]
  - Micturition urgency [Unknown]
  - Contusion [Unknown]
  - Synovial cyst [Unknown]
  - Joint injury [Unknown]
  - Urine abnormality [Unknown]
  - Bladder pain [Unknown]
  - Nausea [Unknown]
  - Pleurisy [Unknown]
  - Dyspnoea [Recovered/Resolved]
  - Dyspnoea [Recovered/Resolved]
  - Dyspnoea [Recovered/Resolved]
  - Dyspnoea [Unknown]
  - Abdominal discomfort [Unknown]
  - Abdominal pain [Unknown]
  - Needle issue [Unknown]
  - Incision site pain [Unknown]
  - Injection site pain [Unknown]
  - Injection site haemorrhage [Unknown]
  - Injection site discomfort [Recovered/Resolved]
  - Therapeutic response shortened [Unknown]
  - Product use in unapproved indication [Unknown]
  - Inappropriate schedule of product administration [Unknown]
  - Product dose omission issue [Unknown]

NARRATIVE: CASE EVENT DATE: 20170101
